FAERS Safety Report 25984370 (Version 1)
Quarter: 2025Q4

REPORT INFORMATION
  Report Type: Spontaneous
  Country: EU (occurrence: EU)
  Receive Date: 20251031
  Receipt Date: 20251031
  Transmission Date: 20260118
  Serious: Yes (Other)
  Sender: EMD SERONO INC
  Company Number: EU-Merck Healthcare KGaA-2025054303

PATIENT
  Age: 80 Year
  Sex: Female

DRUGS (1)
  1. AVELUMAB [Suspect]
     Active Substance: AVELUMAB
     Indication: Transitional cell carcinoma

REACTIONS (3)
  - Myocardial injury [Unknown]
  - Troponin abnormal [Recovering/Resolving]
  - Lymphadenopathy [Unknown]
